FAERS Safety Report 12736050 (Version 1)
Quarter: 2016Q3

REPORT INFORMATION
  Report Type: Spontaneous
  Country: JP (occurrence: JP)
  Receive Date: 20160912
  Receipt Date: 20160912
  Transmission Date: 20161109
  Serious: Yes (Other)
  Sender: FDA-Public Use
  Company Number: JP-PFIZER INC-2016420884

PATIENT
  Age: 75 Year
  Sex: Female

DRUGS (1)
  1. EPIPEN [Suspect]
     Active Substance: EPINEPHRINE
     Indication: ALLERGY TO ARTHROPOD STING
     Dosage: UNK
     Route: 030
     Dates: start: 20160904

REACTIONS (3)
  - Malaise [Not Recovered/Not Resolved]
  - Condition aggravated [Unknown]
  - Seizure [Unknown]

NARRATIVE: CASE EVENT DATE: 201609
